FAERS Safety Report 5584616-5 (Version None)
Quarter: 2008Q2

REPORT INFORMATION
  Report Type: 
  Country: None (occurrence: None)
  Receive Date: 20080103
  Receipt Date: 20071218
  Transmission Date: 20081010
  Serious: Yes (Hospitalization)
  Sender: FDA-Public Use
  Company Number: 2007BM000196

PATIENT
  Age: 22 Year
  Sex: Female

DRUGS (4)
  1. PREDNISOLONE [Suspect]
     Indication: COLITIS ULCERATIVE
     Dosage: 20 MG;QD;10MG;QD
  2. PREDNISOLONE [Suspect]
     Indication: COLITIS ULCERATIVE
     Dosage: 20 MG;QD;10MG;QD
  3. AZATHIOPRINE SODIUM [Suspect]
     Indication: COLITIS ULCERATIVE
     Dosage: 50 MG;QD;
  4. AMINOSALICYLATE SODIUM [Concomitant]

REACTIONS (8)
  - BLOOD POTASSIUM DECREASED [None]
  - BLOOD PRESSURE SYSTOLIC DECREASED [None]
  - COMA [None]
  - CONDITION AGGRAVATED [None]
  - DIARRHOEA HAEMORRHAGIC [None]
  - DYSENTERY [None]
  - ENCEPHALITIS HERPES [None]
  - HAEMOGLOBIN DECREASED [None]
